FAERS Safety Report 7464433-1 (Version None)
Quarter: 2011Q2

REPORT INFORMATION
  Report Type: 
  Country: None (occurrence: None)
  Receive Date: 20110509
  Receipt Date: 20110505
  Transmission Date: 20111010
  Serious: No
  Sender: FDA-Public Use
  Company Number: US-PFIZER INC-2011096957

PATIENT
  Sex: Female

DRUGS (5)
  1. AMBIEN [Interacting]
     Dosage: UNK
  2. ABILIFY [Interacting]
     Dosage: UNK
  3. CHANTIX [Suspect]
     Dosage: UNK
  4. SEROQUEL [Interacting]
     Dosage: UNK
  5. TRILEPTAL [Interacting]
     Dosage: UNK

REACTIONS (2)
  - DRUG INTERACTION [None]
  - FEELING ABNORMAL [None]
